FAERS Safety Report 6646672-2 (Version None)
Quarter: 2010Q1

REPORT INFORMATION
  Report Type: 
  Country: None (occurrence: None)
  Receive Date: 20100323
  Receipt Date: 20100312
  Transmission Date: 20100710
  Serious: Yes (Other)
  Sender: FDA-Public Use
  Company Number: US-JNJFOC-20100304351

PATIENT
  Sex: Female
  Weight: 78.02 kg

DRUGS (8)
  1. REMICADE [Suspect]
     Indication: COLITIS ULCERATIVE
     Route: 042
  2. REMICADE [Suspect]
     Route: 042
  3. JANUVIA [Concomitant]
  4. ASPIRIN [Concomitant]
  5. ASACOL [Concomitant]
     Dosage: DOSE: 2 CAPSULES EVERY MEAL
  6. ENTOCORT EC [Concomitant]
  7. TRICOR [Concomitant]
     Indication: HYPERTENSION
  8. EZETIMIBE/SIMVASTATIN [Concomitant]
     Indication: HYPERTENSION

REACTIONS (11)
  - ANAEMIA [None]
  - DYSPHONIA [None]
  - ECCHYMOSIS [None]
  - FEELING OF BODY TEMPERATURE CHANGE [None]
  - HAEMATOCHEZIA [None]
  - INFUSION RELATED REACTION [None]
  - MUCOUS STOOLS [None]
  - MYALGIA [None]
  - PAIN IN EXTREMITY [None]
  - TREMOR [None]
  - WEIGHT INCREASED [None]
